FAERS Safety Report 23143302 (Version 1)
Quarter: 2023Q4

REPORT INFORMATION
  Report Type: Report from Study
  Country: IT (occurrence: IT)
  Receive Date: 20231103
  Receipt Date: 20231103
  Transmission Date: 20240110
  Serious: Yes (Hospitalization)
  Sender: FDA-Public Use
  Company Number: IT-Eisai-EC-2023-151700

PATIENT
  Age: 65 Year
  Sex: Male
  Weight: 85.0 kg

DRUGS (16)
  1. LENVATINIB [Suspect]
     Active Substance: LENVATINIB
     Indication: Malignant melanoma
     Route: 048
     Dates: start: 20230616
  2. QUAVONLIMAB [Suspect]
     Active Substance: QUAVONLIMAB
     Indication: Malignant melanoma
     Dosage: QUAVONLIMAB (MK-1308) 25 MG (+) PEMBROLIZUMAB (MK-3475) 400 MG (MK-1308A)
     Route: 041
     Dates: start: 20230616
  3. CANRENOATE POTASSIUM [Concomitant]
     Active Substance: CANRENOATE POTASSIUM
     Dates: start: 2015
  4. NALOXONE [NALOXONE HYDROCHLORIDE] [Concomitant]
     Dates: start: 20231004
  5. ROSUVASTATIN CALCIUM [Concomitant]
     Active Substance: ROSUVASTATIN CALCIUM
     Dates: start: 2020
  6. OXYCODONE [Concomitant]
     Active Substance: OXYCODONE
     Dates: start: 20231004
  7. RAMIPRIL [Concomitant]
     Active Substance: RAMIPRIL
     Dates: start: 2015
  8. CARVEDILOL [Concomitant]
     Active Substance: CARVEDILOL
     Dates: start: 2015
  9. ALLOPURINOL [Concomitant]
     Active Substance: ALLOPURINOL
     Dates: start: 2022
  10. MORPHINE [Concomitant]
     Active Substance: MORPHINE
     Dates: start: 20221004
  11. LANSOPRAZOLE [Concomitant]
     Active Substance: LANSOPRAZOLE
     Dates: start: 2023
  12. PREDNISONE [Concomitant]
     Active Substance: PREDNISONE
     Dates: start: 20231011
  13. CIPROFLOXACIN [Concomitant]
     Active Substance: CIPROFLOXACIN
     Dates: start: 20231020, end: 20231024
  14. FUROSEMIDE [Concomitant]
     Active Substance: FUROSEMIDE
     Dates: start: 20231020
  15. CANRENONE [Concomitant]
     Active Substance: CANRENONE
     Dates: start: 20231020
  16. PEMBROLIZUMAB [Suspect]
     Active Substance: PEMBROLIZUMAB

REACTIONS (1)
  - Anaemia [Not Recovered/Not Resolved]

NARRATIVE: CASE EVENT DATE: 20231026
